FAERS Safety Report 25994325 (Version 1)
Quarter: 2025Q4

REPORT INFORMATION
  Report Type: Spontaneous
  Country: EU (occurrence: EU)
  Receive Date: 20251104
  Receipt Date: 20251104
  Transmission Date: 20260118
  Serious: Yes (Hospitalization)
  Sender: RANBAXY
  Company Number: EU-MINISAL02-1049274

PATIENT
  Sex: Female

DRUGS (4)
  1. CITALOPRAM [Suspect]
     Active Substance: CITALOPRAM
     Indication: Mental disorder
     Dosage: UNK
     Route: 048
     Dates: start: 20250620, end: 20250620
  2. CITALOPRAM [Suspect]
     Active Substance: CITALOPRAM
     Indication: Overdose
     Dosage: 1 DOSAGE FORM, QD
     Route: 048
  3. ZYPREXA [Suspect]
     Active Substance: OLANZAPINE
     Indication: Mental disorder
     Dosage: UNK
     Route: 048
     Dates: start: 20250620, end: 20250620
  4. ZYPREXA [Suspect]
     Active Substance: OLANZAPINE
     Indication: Overdose
     Dosage: 1 DOSAGE FORM, QD
     Route: 048

REACTIONS (5)
  - Agitation [Recovering/Resolving]
  - Mydriasis [Recovering/Resolving]
  - Coma [Recovering/Resolving]
  - Body temperature increased [Recovering/Resolving]
  - Overdose [Recovering/Resolving]

NARRATIVE: CASE EVENT DATE: 20250620
